FAERS Safety Report 4277690-X (Version None)
Quarter: 2004Q1

REPORT INFORMATION
  Report Type: 
  Country: None (occurrence: None)
  Receive Date: 20040121
  Receipt Date: 20040109
  Transmission Date: 20041129
  Serious: Yes (Hospitalization)
  Sender: FDA-Public Use
  Company Number: DSA_60382_2004

PATIENT
  Sex: Female

DRUGS (2)
  1. MYSOLINE [Suspect]
     Indication: EPILEPSY
     Dosage: 500 MG DAILY PO
     Route: 048
     Dates: start: 19880101, end: 20031001
  2. ALEPSAL [Concomitant]

REACTIONS (1)
  - CONVULSION [None]
